FAERS Safety Report 17360687 (Version 1)
Quarter: 2020Q1

REPORT INFORMATION
  Report Type: Spontaneous
  Country: US (occurrence: US)
  Receive Date: 20200203
  Receipt Date: 20200203
  Transmission Date: 20200409
  Serious: Yes (Death, Hospitalization)
  Sender: FDA-Public Use
  Company Number: US-ALVOGEN-2020-ALVOGEN-102635

PATIENT
  Age: 43 Year
  Sex: Female

DRUGS (7)
  1. OXYCODONE [Suspect]
     Active Substance: OXYCODONE
     Indication: SUICIDE ATTEMPT
     Dosage: ROUTE: INGESTION
     Route: 048
  2. HYDROCODONE [Suspect]
     Active Substance: HYDROCODONE
     Indication: SUICIDE ATTEMPT
     Dosage: ROUTE: INGESTION
     Route: 048
  3. NAPROXEN. [Suspect]
     Active Substance: NAPROXEN
     Indication: SUICIDE ATTEMPT
     Dosage: ROUTE: INGESTION
     Route: 048
  4. ACETAMINOPHEN. [Suspect]
     Active Substance: ACETAMINOPHEN
     Indication: SUICIDE ATTEMPT
     Dosage: ROUTE: INGESTION
     Route: 048
  5. ALCOHOL. [Suspect]
     Active Substance: ALCOHOL
     Indication: SUICIDE ATTEMPT
     Dosage: ROUTE: INGESTION
     Route: 048
  6. BUPROPION. [Suspect]
     Active Substance: BUPROPION
     Indication: SUICIDE ATTEMPT
     Dosage: ROUTE: INGESTION
     Route: 048
  7. FENTANYL. [Suspect]
     Active Substance: FENTANYL
     Indication: SUICIDE ATTEMPT
     Dosage: ROUTE: INGESTION
     Route: 048

REACTIONS (1)
  - Completed suicide [Fatal]
